FAERS Safety Report 20406463 (Version 1)
Quarter: 2022Q1

REPORT INFORMATION
  Report Type: Spontaneous
  Country: US (occurrence: US)
  Receive Date: 20220131
  Receipt Date: 20220131
  Transmission Date: 20220424
  Serious: No
  Sender: FDA-Public Use
  Company Number: US-SA-SAC20220126000021

PATIENT
  Age: 53 Year
  Sex: Female

DRUGS (1)
  1. DUPIXENT [Suspect]
     Active Substance: DUPILUMAB
     Dosage: 2 ML
     Route: 058
     Dates: start: 202110

REACTIONS (6)
  - Oral herpes [Unknown]
  - Eye pruritus [Unknown]
  - Pyrexia [Unknown]
  - Conjunctivitis [Unknown]
  - Discharge [Unknown]
  - Vision blurred [Unknown]

NARRATIVE: CASE EVENT DATE: 20211229
